FAERS Safety Report 22396183 (Version 1)
Quarter: 2023Q2

REPORT INFORMATION
  Report Type: Spontaneous
  Country: US (occurrence: US)
  Receive Date: 20230601
  Receipt Date: 20230601
  Transmission Date: 20230722
  Serious: No
  Sender: FDA-Public Use
  Company Number: US-APIL-2314609US

PATIENT
  Age: 46 Year
  Sex: Female

DRUGS (1)
  1. LILETTA [Suspect]
     Active Substance: LEVONORGESTREL
     Indication: Product used for unknown indication
     Dosage: 52 MG, SINGLE
     Route: 015
     Dates: start: 20230417, end: 20230419

REACTIONS (3)
  - Pyrexia [Unknown]
  - Uterine spasm [Unknown]
  - Headache [Unknown]

NARRATIVE: CASE EVENT DATE: 20230419
